FAERS Safety Report 13696585 (Version 1)
Quarter: 2017Q2

REPORT INFORMATION
  Report Type: Spontaneous
  Country: JP (occurrence: JP)
  Receive Date: 20170628
  Receipt Date: 20170628
  Transmission Date: 20170830
  Serious: Yes (Other)
  Sender: FDA-Public Use
  Company Number: PHJP2016JP032024

PATIENT
  Age: 63 Year
  Sex: Male

DRUGS (3)
  1. MIYA-BM [Concomitant]
     Active Substance: CLOSTRIDIUM BUTYRICUM SPORES STRAIN M-55
     Indication: PRODUCT USED FOR UNKNOWN INDICATION
     Dosage: UNK
     Route: 065
  2. AFINITOR [Suspect]
     Active Substance: EVEROLIMUS
     Indication: NEUROENDOCRINE TUMOUR
     Dosage: 10 MG, UNK
     Route: 048
     Dates: start: 20161101, end: 20161114
  3. AFINITOR [Suspect]
     Active Substance: EVEROLIMUS
     Dosage: 5 MG, QD
     Route: 048

REACTIONS (8)
  - Erythema [Unknown]
  - Diarrhoea infectious [Recovering/Resolving]
  - Flushing [Unknown]
  - Disseminated intravascular coagulation [Unknown]
  - Hepatic function abnormal [Recovered/Resolved]
  - Faeces discoloured [Recovered/Resolved]
  - Type I hypersensitivity [Unknown]
  - Rash [Unknown]
